FAERS Safety Report 8272542 (Version 4)
Quarter: 2013Q2

REPORT INFORMATION
  Report Type: Spontaneous
  Country: US (occurrence: None)
  Receive Date: 20111122
  Receipt Date: 20130107
  Transmission Date: 20140414
  Serious: Yes (Other)
  Sender: FDA-Public Use
  Company Number: PHHY2011US61177

PATIENT
  Age: 67 Year
  Sex: Male
  Weight: 83.9 kg

DRUGS (18)
  1. GILENYA [Suspect]
     Indication: MULTIPLE SCLEROSIS
     Dosage: 0.5 MG, DAILY, ORAL
     Route: 048
     Dates: start: 20110621, end: 20110927
  2. MIRAPEX [Concomitant]
  3. TEGRETOL [Concomitant]
  4. ZANAFLEX [Concomitant]
  5. HYDROCHLOROTHIAZIDE (HYDROCHLOROTHIAZIDE) [Concomitant]
  6. VIAGRA [Concomitant]
  7. AMLODIPINE (AMLODIPINE) [Concomitant]
  8. CENTRUM SILVER (ASCORBIC ACID ,CALCIUM, MINERALS NOS, RETINOL, TOCOOHERYL ACETATE, VITAMIN B NOS, VITAMINS NOS, ZINC) [Concomitant]
  9. FINACEA (AZELAIC ACID) [Concomitant]
  10. GLUCOSAMINE W/CHONDOITIN (CHONDROITIN SULFATE, GLUCOSAMINE) [Concomitant]
  11. LASIX (FUROSEMIDE) [Concomitant]
  12. METOGREL (METRONIDAZOLE) [Concomitant]
  13. PAXIL (PAROXETINE HYDROCHLORIDE) [Concomitant]
  14. PRAVASTATIN (PRAVASTATIN) [Concomitant]
  15. SELENIUM (SELENIUM) [Concomitant]
  16. SUPER CRANBERRY [Concomitant]
  17. TAMSULOSIN (TAMSULOSIN) EXTENDED RELEASE CAPSULES, 0.4 MG [Concomitant]
  18. VITAMIN D (ERGOCALIFEROL) [Concomitant]

REACTIONS (11)
  - RETINAL DISORDER [None]
  - PHOTOPHOBIA [None]
  - DECREASED APPETITE [None]
  - BLOOD PRESSURE ABNORMAL [None]
  - FATIGUE [None]
  - NAUSEA [None]
  - COUGH [None]
  - HEADACHE [None]
  - HEART RATE IRREGULAR [None]
  - Macular oedema [None]
  - Vomiting [None]
